FAERS Safety Report 23094386 (Version 4)
Quarter: 2024Q4

REPORT INFORMATION
  Report Type: Report from Study
  Country: CA (occurrence: CA)
  Receive Date: 20231023
  Receipt Date: 20241212
  Transmission Date: 20250114
  Serious: Yes (Death, Other)
  Sender: TAKEDA
  Company Number: CA-TAKEDA-2023TUS101155

PATIENT
  Sex: Female

DRUGS (11)
  1. VEDOLIZUMAB [Suspect]
     Active Substance: VEDOLIZUMAB
     Indication: Colitis ulcerative
     Dosage: 300 MILLIGRAM
  2. VEDOLIZUMAB [Suspect]
     Active Substance: VEDOLIZUMAB
     Dosage: 300 MILLIGRAM
  3. VEDOLIZUMAB [Suspect]
     Active Substance: VEDOLIZUMAB
     Dosage: 300 MILLIGRAM
  4. VEDOLIZUMAB [Suspect]
     Active Substance: VEDOLIZUMAB
     Indication: Colitis ulcerative
     Dosage: 108 MILLIGRAM, Q2WEEKS
     Dates: start: 20241018
  5. SYNTHROID [Concomitant]
     Active Substance: LEVOTHYROXINE SODIUM
     Dosage: UNK
  6. MESALAMINE [Concomitant]
     Active Substance: MESALAMINE
     Dosage: 4.8 GRAM, QD
  7. Cortiment [Concomitant]
     Dosage: 9 MILLIGRAM, QD
  8. METFORMIN [Concomitant]
     Active Substance: METFORMIN HYDROCHLORIDE
     Dosage: 500 MILLIGRAM, QD
  9. PREDNISONE [Concomitant]
     Active Substance: PREDNISONE
     Dosage: UNK
  10. DECADRON [Concomitant]
     Active Substance: DEXAMETHASONE
     Dosage: 4 MILLIGRAM, QD
  11. HYDROMORPHONE [Concomitant]
     Active Substance: HYDROMORPHONE
     Dosage: 3 MILLIGRAM, BID

REACTIONS (3)
  - Brain cancer metastatic [Fatal]
  - Hemiparesis [Unknown]
  - Mobility decreased [Unknown]
